FAERS Safety Report 4854828-4 (Version None)
Quarter: 2005Q4

REPORT INFORMATION
  Report Type: 
  Country: None (occurrence: None)
  Receive Date: 20051214
  Receipt Date: 20051214
  Transmission Date: 20060501
  Serious: Yes (Other)
  Sender: FDA-Public Use
  Company Number: None

PATIENT
  Age: 62 Year
  Sex: Male

DRUGS (5)
  1. GLIMEPIRIDE [Suspect]
     Indication: DIABETES MELLITUS
     Dosage: ONE TABLET TWICE DAILY ORALLY BY MOUTH
     Route: 048
     Dates: start: 20051207, end: 20051212
  2. VERAPAMIL [Concomitant]
  3. ZETIA [Concomitant]
  4. METFORMIN HCL [Concomitant]
  5. QUINAPRIL [Concomitant]

REACTIONS (2)
  - BLOOD GLUCOSE INCREASED [None]
  - THERAPEUTIC RESPONSE UNEXPECTED WITH DRUG SUBSTITUTION [None]
